FAERS Safety Report 7407343-8 (Version None)
Quarter: 2011Q2

REPORT INFORMATION
  Report Type: 
  Country: None (occurrence: None)
  Receive Date: 20110411
  Receipt Date: 20110329
  Transmission Date: 20111010
  Serious: Yes (Hospitalization)
  Sender: FDA-Public Use
  Company Number: US-ELI_LILLY_AND_COMPANY-US201004005823

PATIENT
  Sex: Female

DRUGS (3)
  1. OXYGEN [Concomitant]
  2. FORTEO [Suspect]
     Indication: OSTEOPOROSIS
     Dosage: UNK, DAILY (1/D)
     Route: 065
  3. FORTEO [Suspect]
     Dosage: 20 UG, DAILY (1/D)
     Route: 065
     Dates: end: 20101128

REACTIONS (4)
  - MEMORY IMPAIRMENT [None]
  - DYSPNOEA [None]
  - EMPHYSEMA [None]
  - MALAISE [None]
